FAERS Safety Report 8548137-X (Version None)
Quarter: 2012Q3

REPORT INFORMATION
  Report Type: 
  Country: None (occurrence: None)
  Receive Date: 20120730
  Receipt Date: 20120717
  Transmission Date: 20120928
  Serious: Yes (Other)
  Sender: FDA-Public Use
  Company Number: ES-BIOGENIDEC-2012BI024223

PATIENT
  Age: 52 Year
  Sex: Female

DRUGS (3)
  1. TYSABRI [Suspect]
     Indication: MULTIPLE SCLEROSIS
     Route: 042
     Dates: start: 20080515, end: 20120612
  2. CALCIFEROL [Concomitant]
     Dates: start: 20120224
  3. LEVOTHYROXINE SODIUM [Concomitant]
     Dates: start: 20041221

REACTIONS (1)
  - BREAST CANCER [None]
